FAERS Safety Report 6971749-1 (Version None)
Quarter: 2010Q3

REPORT INFORMATION
  Report Type: 
  Country: None (occurrence: None)
  Receive Date: 20100903
  Receipt Date: 20100824
  Transmission Date: 20110219
  Serious: Yes (Hospitalization)
  Sender: FDA-Public Use
  Company Number: DSU-2010-04342

PATIENT
  Sex: Female
  Weight: 69.8539 kg

DRUGS (12)
  1. BENICAR HCT [Suspect]
     Indication: HYPERTENSION
     Dosage: 40/12.5 MG (QD), PER ORAL, 40/12.5MG (QD), PER ORAL
     Route: 048
     Dates: start: 20060101
  2. NEXIUM [Concomitant]
  3. ELMIRON [Concomitant]
  4. SYMAX (HYOSCYAMINE SULFATE) [Concomitant]
  5. BUSPIRONE HCL [Concomitant]
  6. NITROFURANTOIN [Concomitant]
  7. LEVOTHYROXINE SODIUM [Concomitant]
  8. AMITRIPTYLINE HYDROCHLORIDE [Concomitant]
  9. HYDROXYZINE [Concomitant]
  10. ESTRADIOL [Concomitant]
  11. AMOXICILLIN [Concomitant]
  12. UNSPECIFIED CREAM [Concomitant]

REACTIONS (4)
  - BLOOD PRESSURE INCREASED [None]
  - ECONOMIC PROBLEM [None]
  - KNEE ARTHROPLASTY [None]
  - PRODUCT SUBSTITUTION ISSUE [None]
